FAERS Safety Report 9409959 (Version 5)
Quarter: 2013Q4

REPORT INFORMATION
  Report Type: Spontaneous
  Country: JP (occurrence: JP)
  Receive Date: 20130719
  Receipt Date: 20131113
  Transmission Date: 20140711
  Serious: Yes (Other)
  Sender: FDA-Public Use
  Company Number: JP-JNJFOC-20130708799

PATIENT
  Age: 55 Year
  Sex: Female
  Weight: 38 kg

DRUGS (8)
  1. REMICADE [Suspect]
     Indication: COLITIS ULCERATIVE
     Dosage: 1ST DOSE
     Route: 042
     Dates: start: 20120920
  2. REMICADE [Suspect]
     Indication: COLITIS ULCERATIVE
     Dosage: 3RD DOSE
     Route: 042
     Dates: start: 20121101, end: 2013
  3. IMURAN [Concomitant]
     Indication: COLITIS ULCERATIVE
     Route: 048
  4. BIOFERMIN R [Concomitant]
     Indication: COLITIS ULCERATIVE
     Route: 048
  5. GASTER D [Concomitant]
     Indication: GASTRIC ULCER
     Route: 048
  6. EDIROL [Concomitant]
     Indication: OSTEOPOROSIS
     Route: 048
  7. AMLODIN [Concomitant]
     Indication: HYPERTENSION
     Route: 048
  8. PENTASA [Concomitant]
     Indication: COLITIS ULCERATIVE
     Route: 048

REACTIONS (1)
  - Myositis [Recovering/Resolving]
